FAERS Safety Report 23686066 (Version 1)
Quarter: 2024Q1

REPORT INFORMATION
  Report Type: Spontaneous
  Country: FR (occurrence: FR)
  Receive Date: 20240329
  Receipt Date: 20240329
  Transmission Date: 20240410
  Serious: Yes (Hospitalization)
  Sender: FDA-Public Use
  Company Number: FR-SUN PHARMACEUTICAL INDUSTRIES LTD-2024RR-438884

PATIENT
  Age: 57 Year
  Sex: Male
  Weight: 106 kg

DRUGS (5)
  1. PANTOPRAZOLE [Suspect]
     Active Substance: PANTOPRAZOLE
     Indication: Prophylaxis
     Dosage: 80 MILLIGRAM, DAILY
     Route: 048
     Dates: start: 20231108, end: 20231110
  2. PANTOPRAZOLE [Suspect]
     Active Substance: PANTOPRAZOLE
     Dosage: 80 MILLIGRAM, DAILY
     Route: 040
     Dates: start: 20231107, end: 20231108
  3. PHLOROGLUCINOL [Suspect]
     Active Substance: PHLOROGLUCINOL
     Indication: Abdominal pain
     Dosage: 80 MILLIGRAM, DAILY
     Route: 040
     Dates: start: 20231106, end: 20231110
  4. PIPERACILLIN SODIUM\TAZOBACTAM SODIUM [Suspect]
     Active Substance: PIPERACILLIN SODIUM\TAZOBACTAM SODIUM
     Indication: Abdominal wall abscess
     Dosage: 12 GRAM, DAILY
     Route: 040
     Dates: start: 20231106, end: 20231110
  5. LINEZOLID [Suspect]
     Active Substance: LINEZOLID
     Indication: Abdominal wall abscess
     Dosage: 1200 MILLIGRAM, DAILY
     Route: 048
     Dates: start: 20231107, end: 20231113

REACTIONS (1)
  - Vascular purpura [Recovering/Resolving]

NARRATIVE: CASE EVENT DATE: 20231110
